FAERS Safety Report 7772672-5 (Version None)
Quarter: 2011Q3

REPORT INFORMATION
  Report Type: 
  Country: None (occurrence: None)
  Receive Date: 20110922
  Receipt Date: 20110330
  Transmission Date: 20111222
  Serious: No
  Sender: FDA-Public Use
  Company Number: US-ASTRAZENECA-2011SE18055

PATIENT
  Age: 19 Year
  Sex: Female
  Weight: 85.7 kg

DRUGS (7)
  1. SEROQUEL [Suspect]
     Route: 048
  2. SEROQUEL [Suspect]
     Dosage: THREE TIMES A DAY
     Route: 048
     Dates: start: 20110329
  3. SEROQUEL [Suspect]
     Dosage: THREE TIMES A DAY
     Route: 048
     Dates: start: 20110329
  4. CARBAMAZEPINE [Concomitant]
  5. SEROQUEL [Suspect]
     Route: 048
  6. SEROQUEL [Suspect]
     Indication: BIPOLAR DISORDER
     Route: 048
  7. SEROQUEL [Suspect]
     Indication: SLEEP DISORDER
     Route: 048

REACTIONS (5)
  - HALLUCINATION, AUDITORY [None]
  - HYPOAESTHESIA [None]
  - INSOMNIA [None]
  - HEADACHE [None]
  - DIZZINESS [None]
